FAERS Safety Report 7330999-5 (Version None)
Quarter: 2011Q1

REPORT INFORMATION
  Report Type: 
  Country: None (occurrence: None)
  Receive Date: 20110304
  Receipt Date: 20110223
  Transmission Date: 20110831
  Serious: Yes (Hospitalization)
  Sender: FDA-Public Use
  Company Number: US-RB-018961-10

PATIENT
  Sex: Female

DRUGS (3)
  1. SUBOXONE [Suspect]
     Indication: DRUG DEPENDENCE
     Route: 060
     Dates: start: 20090101, end: 20101001
  2. SUBOXONE [Suspect]
     Indication: DRUG DEPENDENCE
     Route: 060
     Dates: start: 20101001
  3. PERCOCET [Suspect]
     Indication: PRODUCT USED FOR UNKNOWN INDICATION
     Dosage: DOSING INFORMATION UNKNOWN; FORM UNKNOWN
     Route: 065

REACTIONS (6)
  - EAR INFECTION [None]
  - CONDITION AGGRAVATED [None]
  - ASTHENIA [None]
  - DRUG WITHDRAWAL SYNDROME [None]
  - SUBSTANCE ABUSE [None]
  - HEADACHE [None]
